FAERS Safety Report 8533418-6 (Version None)
Quarter: 2012Q3

REPORT INFORMATION
  Report Type: 
  Country: None (occurrence: None)
  Receive Date: 20120724
  Receipt Date: 20120720
  Transmission Date: 20120928
  Serious: Yes (Death)
  Sender: FDA-Public Use
  Company Number: PHEH2012US013252

PATIENT
  Sex: Female
  Weight: 56.689 kg

DRUGS (11)
  1. AROMASIN [Concomitant]
     Indication: BREAST CANCER
     Dosage: 25 MG, QD
     Route: 048
     Dates: start: 20120401, end: 20120601
  2. AFINITOR [Suspect]
     Indication: NEOPLASM PROGRESSION
     Dosage: 10 MG, DAILY
     Route: 048
  3. REGELAN [Concomitant]
     Dosage: 10 MG, UNK
  4. NEXIUM [Concomitant]
     Dosage: 20 MG, UNK
  5. IRON [Concomitant]
     Dosage: 50 MG, UNK
  6. VITAMIN D HIGH CAP POTENCY [Concomitant]
  7. LASIX [Concomitant]
     Indication: OEDEMA
     Dosage: 20 MG, QD
     Route: 048
     Dates: start: 20120601, end: 20120601
  8. PHENERGAN HCL [Concomitant]
     Indication: NAUSEA
     Dosage: 25 MG, QD
     Route: 048
     Dates: start: 20120601, end: 20120601
  9. KRILL OIL [Concomitant]
     Dosage: 300 MG, UNK
  10. ASCORBIC ACID [Concomitant]
     Dosage: 100 MG, UNK
  11. ZOFRAN [Concomitant]
     Indication: NAUSEA
     Dosage: 8 MG, Q8H
     Route: 048
     Dates: start: 20120601, end: 20120601

REACTIONS (6)
  - NAUSEA [None]
  - MUCOSAL INFLAMMATION [None]
  - NEOPLASM PROGRESSION [None]
  - NEOPLASM MALIGNANT [None]
  - OEDEMA [None]
  - ANAEMIA [None]
